FAERS Safety Report 6439198-2 (Version None)
Quarter: 2009Q4

REPORT INFORMATION
  Report Type: 
  Country: None (occurrence: None)
  Receive Date: 20091113
  Receipt Date: 20091106
  Transmission Date: 20100525
  Serious: Yes (Other)
  Sender: FDA-Public Use
  Company Number: US-PFIZER INC-2009294802

PATIENT
  Sex: Female

DRUGS (5)
  1. CELEBREX [Suspect]
     Dosage: 200 MG, 2X/DAY
  2. SYNTHROID [Concomitant]
  3. PERCOCET [Concomitant]
  4. TRAMADOL [Concomitant]
  5. OXYCODONE [Concomitant]

REACTIONS (3)
  - BACK PAIN [None]
  - LUNG NEOPLASM MALIGNANT [None]
  - PLATELET COUNT DECREASED [None]
